FAERS Safety Report 7650773-X (Version None)
Quarter: 2011Q3

REPORT INFORMATION
  Report Type: 
  Country: None (occurrence: None)
  Receive Date: 20110802
  Receipt Date: 20110726
  Transmission Date: 20111222
  Serious: Yes (Other)
  Sender: FDA-Public Use
  Company Number: NL-PFIZER INC-2011170345

PATIENT
  Age: 50 Year
  Sex: Male
  Weight: 84 kg

DRUGS (12)
  1. NOVORAPID [Concomitant]
     Dosage: UNK
     Dates: start: 20101015
  2. NEXIUM [Concomitant]
     Dosage: 40 MG, 2X/DAY
     Dates: start: 20110630
  3. COMBIVENT [Concomitant]
     Dosage: 2.5 ML, 4X/DAY
     Dates: start: 20110711
  4. SALBUTAMOL [Concomitant]
     Dosage: UNK
     Dates: start: 20110712
  5. FUROSEMIDE [Concomitant]
     Dosage: 40 MG, 1X/DAY
     Dates: start: 20110112
  6. ACENOCOUMAROL [Concomitant]
     Dosage: UNK
     Dates: start: 20110711
  7. BUDESONIDE [Concomitant]
     Dosage: UNK
     Dates: start: 20110510
  8. GALENIC /FLUTICASONE/SALMETEROL/ [Concomitant]
     Dosage: UNK
     Dates: start: 20110712
  9. DEXAMETHASONE [Concomitant]
     Dosage: 4.5 MG, 2X/DAY
     Dates: start: 20110711, end: 20110716
  10. AZITHROMYCIN [Suspect]
     Indication: UPPER RESPIRATORY TRACT INFECTION
     Dosage: 500 MG, 1X/DAY
     Dates: start: 20110718
  11. METFORMIN [Concomitant]
     Dosage: 500 MG, 2X/DAY
     Dates: start: 20101130
  12. OXAZEPAM [Concomitant]
     Dosage: 20 MG, 3X/DAY
     Dates: start: 20110608

REACTIONS (1)
  - HYPOGLYCAEMIA [None]
